FAERS Safety Report 7883102-7 (Version None)
Quarter: 2011Q4

REPORT INFORMATION
  Report Type: 
  Country: None (occurrence: None)
  Receive Date: 20111102
  Receipt Date: 20111025
  Transmission Date: 20120403
  Serious: No
  Sender: FDA-Public Use
  Company Number: US-BIOGENIDEC-2011BI040892

PATIENT
  Age: 45 Year
  Sex: Female

DRUGS (2)
  1. TYSABRI [Suspect]
     Indication: MULTIPLE SCLEROSIS
     Route: 042
     Dates: start: 20110929
  2. TYSABRI [Suspect]
     Route: 042
     Dates: start: 20070606, end: 20100720

REACTIONS (3)
  - MULTIPLE SCLEROSIS RELAPSE [None]
  - DYSARTHRIA [None]
  - BLEPHAROSPASM [None]
